FAERS Safety Report 9863966 (Version 2)
Quarter: 2014Q1

REPORT INFORMATION
  Report Type: Report from Study
  Country: BE (occurrence: BE)
  Receive Date: 20140203
  Receipt Date: 20140224
  Transmission Date: 20141002
  Serious: Yes (Death, Hospitalization)
  Sender: FDA-Public Use
  Company Number: PHHY2014BE012172

PATIENT
  Sex: Male
  Weight: 99 kg

DRUGS (10)
  1. INDACATEROL [Suspect]
     Indication: CHRONIC OBSTRUCTIVE PULMONARY DISEASE
     Dosage: 150 UG, QD
     Route: 055
     Dates: start: 20130225
  2. SALMETEROL/FLUTICASONPROPIONAAT [Concomitant]
     Indication: CHRONIC OBSTRUCTIVE PULMONARY DISEASE
     Dosage: 1 DF, UNK
     Route: 055
  3. FENOTEROL W/IPRATROPIUM BROMIDE [Concomitant]
     Indication: CHRONIC OBSTRUCTIVE PULMONARY DISEASE
     Dosage: UNK UKN, UNK
  4. DIOVANE [Concomitant]
     Dosage: 160 MG, UNK
  5. KREDEX [Concomitant]
     Dosage: 25 MG, UNK
  6. PANTOMED//PANTOPRAZOLE SODIUM SESQUIHYDRATE [Concomitant]
     Dosage: 20 MG, UNK
  7. LANOXIN [Concomitant]
  8. ZOCOR [Concomitant]
  9. XARELTO [Concomitant]
  10. SANDOSTATINE//OCTREOTIDE [Concomitant]

REACTIONS (4)
  - Pancreatic carcinoma [Fatal]
  - Malignant neoplasm progression [Fatal]
  - Metastases to stomach [Fatal]
  - Metastases to central nervous system [Fatal]
